FAERS Safety Report 8249248 (Version 3)
Quarter: 2012Q4

REPORT INFORMATION
  Report Type: 
  Country: TH (occurrence: TH)
  Receive Date: 20111117
  Receipt Date: 20121226
  Transmission Date: 20130627
  Serious: Yes (Hospitalization)
  Sender: FDA-Public Use
  Company Number: PHHO2011TH018815

PATIENT
  Age: 43 Year
  Sex: Male
  Weight: 55.6 kg

DRUGS (6)
  1. MYFORTIC [Suspect]
     Indication: RENAL TRANSPLANT
     Dosage: 180 mg, BID
     Dates: start: 20110511, end: 20111109
  2. MYFORTIC [Suspect]
     Dosage: UNK
     Dates: start: 20111130
  3. PREDNISOLONE [Suspect]
     Indication: RENAL TRANSPLANT
     Dosage: 5 mg, QD
     Dates: start: 20110514, end: 20111109
  4. PROGRAF [Suspect]
     Indication: RENAL TRANSPLANT
     Dosage: 2.5 mg, BID
     Dates: start: 20110510, end: 20111109
  5. SIMULECT [Concomitant]
     Indication: RENAL TRANSPLANT
     Dosage: 20 mg, day 1, 4
     Dates: start: 20110510, end: 20110510
  6. METHYLPREDNISOLONE [Concomitant]
     Indication: RENAL TRANSPLANT
     Dosage: 1 g, UNK
     Dates: start: 20110510, end: 20110510

REACTIONS (2)
  - Leukopenia [Recovered/Resolved]
  - Renal artery stenosis [Recovered/Resolved]
